FAERS Safety Report 5023353-2 (Version None)
Quarter: 2006Q2

REPORT INFORMATION
  Report Type: 
  Country: None (occurrence: None)
  Receive Date: 20060525
  Receipt Date: 20060516
  Transmission Date: 20061013
  Serious: Yes (Hospitalization)
  Sender: FDA-Public Use
  Company Number: 200610057

PATIENT
  Age: 30 Year
  Sex: Male

DRUGS (4)
  1. SANDOGLOBULIN [Suspect]
     Indication: GUILLAIN-BARRE SYNDROME
     Dosage: 24 G DAILY IV
     Route: 042
     Dates: start: 20060322, end: 20060326
  2. NEURONTIN [Suspect]
     Dosage: PO
     Route: 048
     Dates: start: 20060323, end: 20060329
  3. CAFEINE [Concomitant]
  4. DAFALGAN [Concomitant]

REACTIONS (4)
  - CAMPYLOBACTER INFECTION [None]
  - CYTOLYTIC HEPATITIS [None]
  - HEPATITIS ACUTE [None]
  - HEPATO-LENTICULAR DEGENERATION [None]
